FAERS Safety Report 9816662 (Version 1)
Quarter: 2014Q1

REPORT INFORMATION
  Report Type: Spontaneous
  Country: US (occurrence: US)
  Receive Date: 20140114
  Receipt Date: 20140114
  Transmission Date: 20141002
  Serious: Yes (Hospitalization, Other)
  Sender: FDA-Public Use
  Company Number: US-ENDO PHARMACEUTICALS INC.-PERC20130124

PATIENT
  Age: 82 Year
  Sex: Female

DRUGS (3)
  1. PERCOCET [Suspect]
     Indication: ARTHRALGIA
     Dosage: UNKNOWN
     Route: 048
  2. PERCOCET [Suspect]
     Indication: PAIN
  3. OXYCODONE [Suspect]
     Indication: PAIN
     Dosage: UNKNOWN
     Route: 048

REACTIONS (3)
  - Overdose [Recovered/Resolved]
  - Intentional drug misuse [Recovered/Resolved]
  - Drug abuse [Recovered/Resolved]
